FAERS Safety Report 5125084-7 (Version None)
Quarter: 2006Q4

REPORT INFORMATION
  Report Type: 
  Country: None (occurrence: None)
  Receive Date: 20061010
  Receipt Date: 20061010
  Transmission Date: 20070319
  Serious: Yes (Hospitalization)
  Sender: FDA-Public Use
  Company Number: None

PATIENT
  Age: 82 Year
  Sex: Male

DRUGS (12)
  1. SPIRONOLACTONE [Suspect]
     Indication: FLUID OVERLOAD
     Dosage: 25 MG QD
     Dates: start: 20060503
  2. POTASSIUM CHLORIDE [Suspect]
     Indication: MINERAL SUPPLEMENTATION
     Dosage: 8 MCQ BID
     Dates: start: 19990601
  3. FOSINOPRIL SODIUM [Suspect]
     Indication: HYPERTENSION
     Dosage: 20 MG QD
     Dates: start: 19980201
  4. ALENDRONATE SODIUM [Concomitant]
  5. PLAVIX [Concomitant]
  6. ASPIRIN [Concomitant]
  7. VITAMIN D [Concomitant]
  8. ISOSORBIDE [Concomitant]
  9. OSCAL [Concomitant]
  10. NITROGLYCERIN [Concomitant]
  11. ZOCOR [Concomitant]
  12. CLARITIN [Concomitant]

REACTIONS (2)
  - HYPERKALAEMIA [None]
  - RENAL FAILURE ACUTE [None]
